FAERS Safety Report 15127113 (Version 1)
Quarter: 2018Q3

REPORT INFORMATION
  Report Type: Spontaneous
  Country: US (occurrence: US)
  Receive Date: 20180614
  Receipt Date: 20180614
  Transmission Date: 20181010
  Serious: Yes (Disabling)
  Sender: FDA-Public Use
  Company Number: None

PATIENT
  Age: 31 Year
  Sex: Female
  Weight: 67.5 kg

DRUGS (6)
  1. OMEGA 3?6?9 [Concomitant]
     Active Substance: FISH OIL
  2. LAMICTAL [Concomitant]
     Active Substance: LAMOTRIGINE
  3. HYDROXYZINE [Concomitant]
     Active Substance: HYDROXYZINE HYDROCHLORIDE
  4. VITAMIN D [Concomitant]
     Active Substance: CHOLECALCIFEROL
  5. LATUDA [Suspect]
     Active Substance: LURASIDONE HYDROCHLORIDE
     Indication: AFFECTIVE DISORDER
     Dosage: ?          QUANTITY:1 TABLET(S);?
     Route: 048
     Dates: start: 20180410, end: 20180609
  6. WELLBUTRIN [Concomitant]
     Active Substance: BUPROPION HYDROCHLORIDE

REACTIONS (6)
  - Chest pain [None]
  - Tremor [None]
  - Hyperhidrosis [None]
  - Drug ineffective [None]
  - Dystonia [None]
  - Anxiety [None]

NARRATIVE: CASE EVENT DATE: 20180610
